FAERS Safety Report 11417560 (Version 3)
Quarter: 2015Q4

REPORT INFORMATION
  Report Type: Report from Study
  Country: US (occurrence: US)
  Receive Date: 20150825
  Receipt Date: 20151110
  Transmission Date: 20160304
  Serious: Yes (Other)
  Sender: FDA-Public Use
  Company Number: US-ASTELLAS-2015US029066

PATIENT
  Age: 13 Year
  Sex: Male
  Weight: 56 kg

DRUGS (1)
  1. TACROLIMUS. [Suspect]
     Active Substance: TACROLIMUS
     Indication: DERMATITIS ATOPIC
     Dosage: 0.03 %, TWICE DAILY
     Route: 061
     Dates: start: 2003

REACTIONS (3)
  - Staphylococcal infection [Recovered/Resolved]
  - Eczema [Recovered/Resolved]
  - Off label use [Unknown]

NARRATIVE: CASE EVENT DATE: 201506
